FAERS Safety Report 16325409 (Version 5)
Quarter: 2020Q1

REPORT INFORMATION
  Report Type: Spontaneous
  Country: US (occurrence: US)
  Receive Date: 20190517
  Receipt Date: 20200327
  Transmission Date: 20200409
  Serious: Yes (Other)
  Sender: FDA-Public Use
  Company Number: US-PFIZER INC-2019209738

PATIENT
  Age: 72 Year
  Sex: Female
  Weight: 70 kg

DRUGS (4)
  1. LEVOTHYROXIN [Concomitant]
     Active Substance: LEVOTHYROXINE
     Indication: THYROID DISORDER
     Dosage: UNK
  2. GENOTROPIN MQ [Suspect]
     Active Substance: SOMATROPIN
     Indication: BLOOD GROWTH HORMONE ABNORMAL
     Dosage: 0.4 MG, ONCE A DAY (EVERY NIGHT, SHE INJECTS IT AT 11PM SHARP NIGHTLY)
     Dates: start: 2008
  3. GENOTROPIN MQ [Suspect]
     Active Substance: SOMATROPIN
     Indication: BLOOD GROWTH HORMONE
  4. GENOTROPIN MQ [Suspect]
     Active Substance: SOMATROPIN
     Indication: HYPOTHALAMO-PITUITARY DISORDER
     Dosage: 0.4 MG, DAILY
     Dates: start: 2008

REACTIONS (2)
  - Glaucoma [Recovered/Resolved]
  - Blood pressure increased [Recovered/Resolved]
